FAERS Safety Report 10089588 (Version 2)
Quarter: 2014Q2

REPORT INFORMATION
  Report Type: Spontaneous
  Country: IT (occurrence: IT)
  Receive Date: 20140421
  Receipt Date: 20140421
  Transmission Date: 20141212
  Serious: Yes (Other)
  Sender: FDA-Public Use
  Company Number: IT-WATSON-2014-07711

PATIENT
  Age: 65 Year
  Sex: Male
  Weight: 82 kg

DRUGS (9)
  1. GLIBOMET [Concomitant]
     Indication: TYPE 1 DIABETES MELLITUS
     Dosage: 1 DF, UNK
     Route: 048
  2. GLUCOBAY [Concomitant]
     Indication: TYPE 1 DIABETES MELLITUS
     Dosage: 50 MG, UNK
     Route: 065
  3. IPSTYL [Concomitant]
     Indication: PRODUCT USED FOR UNKNOWN INDICATION
     Dosage: UNK
     Route: 065
  4. TIROSINT [Concomitant]
     Indication: PRODUCT USED FOR UNKNOWN INDICATION
     Dosage: UNK
     Route: 065
  5. LANTUS [Concomitant]
     Indication: TYPE 1 DIABETES MELLITUS
     Dosage: 22 DF, UNK
     Route: 065
  6. METFORMIN (UNKNOWN) [Suspect]
     Indication: TYPE 1 DIABETES MELLITUS
     Dosage: 400 MG, DAILY
     Route: 048
  7. CAPRELSA [Suspect]
     Indication: MEDULLARY THYROID CANCER
     Dosage: 300 MG, DAILY
     Route: 048
     Dates: start: 20140128, end: 20140316
  8. CAPRELSA [Suspect]
     Dosage: 200 MG, DAILY
     Route: 048
     Dates: start: 20140317
  9. TRIATEC                            /00116401/ [Concomitant]
     Indication: HYPERTENSION
     Dosage: 5 MG, UNK
     Route: 065

REACTIONS (2)
  - Renal failure [Recovering/Resolving]
  - Blood creatinine increased [Recovering/Resolving]
